FAERS Safety Report 17206987 (Version 4)
Quarter: 2020Q2

REPORT INFORMATION
  Report Type: Spontaneous
  Country: US (occurrence: US)
  Receive Date: 20191227
  Receipt Date: 20200608
  Transmission Date: 20200713
  Serious: Yes (Hospitalization, Other)
  Sender: FDA-Public Use
  Company Number: US-AMGEN-USASP2019212753

PATIENT
  Age: 75 Year
  Sex: Female
  Weight: 52.15 kg

DRUGS (4)
  1. AMLODIPINE [Concomitant]
     Active Substance: AMLODIPINE BESYLATE
  2. PROLIA [Suspect]
     Active Substance: DENOSUMAB
     Dosage: UNK
     Route: 065
  3. PROLIA [Suspect]
     Active Substance: DENOSUMAB
     Indication: OSTEOPOROSIS
     Dosage: 60 MILLIGRAM, Q6MO
     Route: 058
     Dates: start: 20190125, end: 20190725
  4. HYDROCHLOROTHIAZIDE. [Concomitant]
     Active Substance: HYDROCHLOROTHIAZIDE

REACTIONS (16)
  - Plasma cell myeloma [Unknown]
  - Fall [Unknown]
  - Metastases to bone [Unknown]
  - Acute kidney injury [Unknown]
  - Renal failure [Unknown]
  - Fatigue [Recovering/Resolving]
  - Joint stiffness [Recovering/Resolving]
  - Pain in jaw [Not Recovered/Not Resolved]
  - Pathological fracture [Unknown]
  - Constipation [Recovering/Resolving]
  - Thoracic vertebral fracture [Unknown]
  - Hyperlipidaemia [Unknown]
  - Back pain [Unknown]
  - Malnutrition [Unknown]
  - Myalgia [Unknown]
  - Nausea [Recovering/Resolving]

NARRATIVE: CASE EVENT DATE: 2019
